FAERS Safety Report 7492689-8 (Version None)
Quarter: 2011Q2

REPORT INFORMATION
  Report Type: 
  Country: None (occurrence: None)
  Receive Date: 20110519
  Receipt Date: 20110511
  Transmission Date: 20111010
  Serious: Yes (Other)
  Sender: FDA-Public Use
  Company Number: MW-ABBOTT-11P-100-0725183-00

PATIENT
  Age: 25 Year
  Sex: Female

DRUGS (2)
  1. COMBIVIR [Concomitant]
     Indication: ANTIRETROVIRAL THERAPY
     Dosage: TAB/CAPS NOT TAKEN AT CONCEPTION
     Route: 048
     Dates: start: 20100309
  2. LOPINAVIR/RITONAVIR [Suspect]
     Indication: HIV INFECTION
     Dosage: 4 TAB/CAPS NOT TAKEN AT CONCEPTION
     Route: 048
     Dates: start: 20100309

REACTIONS (1)
  - STILLBIRTH [None]
